FAERS Safety Report 20021063 (Version 1)
Quarter: 2021Q4

REPORT INFORMATION
  Report Type: Spontaneous
  Country: AU (occurrence: AU)
  Receive Date: 20211101
  Receipt Date: 20211101
  Transmission Date: 20220303
  Serious: Yes (Other)
  Sender: FDA-Public Use
  Company Number: AU-BoehringerIngelheim-2021-BI-135129

PATIENT
  Age: 1 Year
  Sex: Male

DRUGS (1)
  1. CLONIDINE [Suspect]
     Active Substance: CLONIDINE
     Indication: Product used for unknown indication
     Dosage: CLONIDINE
     Dates: start: 20210112

REACTIONS (2)
  - Somnolence [Unknown]
  - Accidental exposure to product by child [Unknown]
